FAERS Safety Report 16255349 (Version 1)
Quarter: 2019Q2

REPORT INFORMATION
  Report Type: Spontaneous
  Country: US (occurrence: US)
  Receive Date: 20190430
  Receipt Date: 20190430
  Transmission Date: 20190711
  Serious: Yes (Hospitalization, Other)
  Sender: FDA-Public Use
  Company Number: US-AUROBINDO-AUR-APL-2019-022895

PATIENT

DRUGS (1)
  1. MELPHALAN (MELPHALAN HYDROCHLORIDE) [Suspect]
     Active Substance: MELPHALAN HYDROCHLORIDE
     Indication: PRODUCT USED FOR UNKNOWN INDICATION
     Dosage: 200 MILLIGRAM/SQ. METER, 2 DAYS BEFORE TRANSPLANT
     Route: 065

REACTIONS (1)
  - Atrial fibrillation [Unknown]
